FAERS Safety Report 10695978 (Version 1)
Quarter: 2015Q1

REPORT INFORMATION
  Report Type: Spontaneous
  Country: UY (occurrence: UY)
  Receive Date: 20150107
  Receipt Date: 20150107
  Transmission Date: 20150721
  Serious: Yes (Other)
  Sender: FDA-Public Use
  Company Number: UY-BAYER-2015-000353

PATIENT
  Age: 50 Year
  Sex: Male

DRUGS (2)
  1. STIVARGA [Suspect]
     Active Substance: REGORAFENIB
     Dosage: DOSE REDUCED
     Dates: start: 201412
  2. STIVARGA [Suspect]
     Active Substance: REGORAFENIB
     Dosage: FULL DOSE
     Dates: start: 201412, end: 201412

REACTIONS (4)
  - Palmar-plantar erythrodysaesthesia syndrome [Recovering/Resolving]
  - Dysphonia [None]
  - Genital discomfort [Recovering/Resolving]
  - Anorectal discomfort [Recovering/Resolving]

NARRATIVE: CASE EVENT DATE: 201412
